FAERS Safety Report 11186232 (Version 1)
Quarter: 2015Q2

REPORT INFORMATION
  Report Type: Spontaneous
  Country: FR (occurrence: FR)
  Receive Date: 20150612
  Receipt Date: 20150612
  Transmission Date: 20150821
  Serious: Yes (Other)
  Sender: FDA-Public Use
  Company Number: FR-ASTRAZENECA-2015SE56533

PATIENT
  Age: 878 Month
  Sex: Male

DRUGS (8)
  1. CRESTOR [Interacting]
     Active Substance: ROSUVASTATIN CALCIUM
     Indication: HYPERLIPIDAEMIA
     Route: 048
     Dates: start: 20150228, end: 201506
  2. PREVISCAN [Concomitant]
     Active Substance: FLUINDIONE
     Route: 048
  3. KIVEXA [Suspect]
     Active Substance: ABACAVIR SULFATE\LAMIVUDINE
     Indication: HIV INFECTION
     Dosage: EVERY DAY
     Route: 048
  4. ALLOPURINOL. [Concomitant]
     Active Substance: ALLOPURINOL
     Indication: GOUT
     Dosage: DAILY
     Route: 048
  5. VIRAMUNE XR [Suspect]
     Active Substance: NEVIRAPINE
     Indication: HIV INFECTION
     Route: 048
  6. IRBESARTAN SR [Concomitant]
     Indication: HYPERTENSION
     Route: 048
  7. DOXAZOSINE [Concomitant]
     Active Substance: DOXAZOSIN MESYLATE
     Route: 048
  8. EZETROL [Interacting]
     Active Substance: EZETIMIBE
     Indication: HYPERLIPIDAEMIA
     Dosage: DAILY
     Route: 048

REACTIONS (2)
  - Hepatitis [Not Recovered/Not Resolved]
  - Drug interaction [Recovered/Resolved]

NARRATIVE: CASE EVENT DATE: 201506
